FAERS Safety Report 12498222 (Version 1)
Quarter: 2016Q2

REPORT INFORMATION
  Report Type: Spontaneous
  Country: NO (occurrence: NO)
  Receive Date: 20160627
  Receipt Date: 20160627
  Transmission Date: 20160815
  Serious: Yes (Other)
  Sender: FDA-Public Use
  Company Number: NO-009507513-1606NOR009239

PATIENT
  Age: 72 Year
  Sex: Male

DRUGS (9)
  1. VENTOLIN [Concomitant]
     Active Substance: ALBUTEROL SULFATE
     Dosage: 1-2 INHALATIONS UP TO 8 TIMES DAILY
     Route: 055
  2. NOBLIGAN [Concomitant]
     Active Substance: TRAMADOL HYDROCHLORIDE
     Indication: PAIN
     Route: 048
  3. CALCIGRAN FORTE [Concomitant]
     Dosage: TABLET STRENGTH 500/400
     Route: 048
  4. METOPROLOL SANDOZ (METOPROLOL SUCCINATE) [Concomitant]
     Route: 048
  5. SPIRIVA [Concomitant]
     Active Substance: TIOTROPIUM BROMIDE MONOHYDRATE
     Route: 055
  6. PARACET [Concomitant]
     Active Substance: ACETAMINOPHEN
     Route: 048
  7. OXIS [Concomitant]
     Active Substance: FORMOTEROL FUMARATE
     Route: 055
  8. ALENDRONATE SODIUM. [Suspect]
     Active Substance: ALENDRONATE SODIUM
     Indication: OSTEOPOROSIS
     Route: 048
     Dates: start: 2012
  9. ATARAX [Concomitant]
     Active Substance: HYDROXYZINE\HYDROXYZINE HYDROCHLORIDE
     Dosage: 25 MG TWICE DAILY AS NECCESSARY

REACTIONS (2)
  - Osteonecrosis of jaw [Not Recovered/Not Resolved]
  - Osteitis [Not Recovered/Not Resolved]

NARRATIVE: CASE EVENT DATE: 20140528
